FAERS Safety Report 6491474-3 (Version None)
Quarter: 2009Q4

REPORT INFORMATION
  Report Type: 
  Country: None (occurrence: None)
  Receive Date: 20091211
  Receipt Date: 20091203
  Transmission Date: 20100525
  Serious: Yes (Hospitalization, Disabling)
  Sender: FDA-Public Use
  Company Number: US-GILEAD-2009-0025836

PATIENT
  Age: 51 Year
  Sex: Male

DRUGS (4)
  1. VIREAD [Suspect]
     Indication: HIV INFECTION
     Dates: start: 20010101, end: 20060101
  2. KALETRA [Concomitant]
     Indication: HIV INFECTION
     Dates: start: 20010101
  3. FOSAMPRENAVIR [Concomitant]
     Indication: HIV INFECTION
     Dates: start: 20010101
  4. ENFUVIRTIDE [Concomitant]
     Indication: HIV INFECTION
     Dates: start: 20010101, end: 20080101

REACTIONS (1)
  - SPINAL FRACTURE [None]
